FAERS Safety Report 20563464 (Version 1)
Quarter: 2022Q1

REPORT INFORMATION
  Report Type: Spontaneous
  Country: FR (occurrence: FR)
  Receive Date: 20220308
  Receipt Date: 20220308
  Transmission Date: 20220423
  Serious: Yes (Other)
  Sender: FDA-Public Use
  Company Number: FR-TEVA-2022-FR-2013741

PATIENT
  Age: 51 Year
  Sex: Female

DRUGS (2)
  1. TRAMADOL [Suspect]
     Active Substance: TRAMADOL
     Indication: Cluster headache
     Dates: start: 2020, end: 2020
  2. FLUVOXAMINE [Concomitant]
     Active Substance: FLUVOXAMINE

REACTIONS (3)
  - Gait inability [Recovered/Resolved]
  - Vertigo [Recovered/Resolved]
  - Product use in unapproved indication [Unknown]

NARRATIVE: CASE EVENT DATE: 20200101
